FAERS Safety Report 15748576 (Version 2)
Quarter: 2019Q2

REPORT INFORMATION
  Report Type: Spontaneous
  Country: US (occurrence: US)
  Receive Date: 20181221
  Receipt Date: 20190417
  Transmission Date: 20190711
  Serious: No
  Sender: FDA-Public Use
  Company Number: US-HTU-2018US017426

PATIENT
  Sex: Male

DRUGS (2)
  1. VALCHLOR [Suspect]
     Active Substance: MECHLORETHAMINE
     Dosage: THIN FILM TO AFFECTED SKIN, QD
     Route: 061
     Dates: start: 20180425
  2. VALCHLOR [Suspect]
     Active Substance: MECHLORETHAMINE
     Indication: CUTANEOUS T-CELL LYMPHOMA
     Dosage: THIN FILM TO AFFECTED SKIN, DAILY
     Route: 061

REACTIONS (7)
  - Application site burn [Unknown]
  - Skin hyperpigmentation [Unknown]
  - Product dose omission [Unknown]
  - Skin discolouration [Unknown]
  - Skin hypertrophy [Unknown]
  - Skin erosion [Unknown]
  - Skin reaction [Unknown]
